FAERS Safety Report 23234418 (Version 5)
Quarter: 2024Q3

REPORT INFORMATION
  Report Type: Report from Study
  Country: CA (occurrence: CA)
  Receive Date: 20231128
  Receipt Date: 20240930
  Transmission Date: 20241016
  Serious: Yes (Other)
  Sender: JOHNSON AND JOHNSON
  Company Number: CA-JNJFOC-20230757984

PATIENT
  Age: 25 Year
  Sex: Female
  Weight: 74 kg

DRUGS (4)
  1. REMICADE [Suspect]
     Active Substance: INFLIXIMAB
     Indication: Colitis ulcerative
     Dosage: 728 MG. LAST DOSE: 03-AUG-2023.?START DATE: 08/MAY/2019 AND 22-OCT-2019,APPOINTMENT POSTPONED UNTIL
     Route: 041
     Dates: start: 20171022
  2. REMICADE [Suspect]
     Active Substance: INFLIXIMAB
     Route: 041
  3. REMICADE [Suspect]
     Active Substance: INFLIXIMAB
     Route: 041
     Dates: start: 20191022
  4. REMICADE [Suspect]
     Active Substance: INFLIXIMAB
     Route: 041
     Dates: start: 20190501

REACTIONS (15)
  - Rectal haemorrhage [Not Recovered/Not Resolved]
  - Rash [Unknown]
  - Ear infection [Not Recovered/Not Resolved]
  - Wisdom teeth removal [Recovered/Resolved]
  - Psoriasis [Not Recovered/Not Resolved]
  - COVID-19 [Recovering/Resolving]
  - Infection [Recovering/Resolving]
  - Fungal infection [Not Recovered/Not Resolved]
  - Streptococcal infection [Unknown]
  - Influenza like illness [Not Recovered/Not Resolved]
  - Sinus pain [Recovering/Resolving]
  - Arthropod bite [Not Recovered/Not Resolved]
  - Abdominal pain [Unknown]
  - Post procedural infection [Unknown]
  - Inappropriate schedule of product administration [Unknown]

NARRATIVE: CASE EVENT DATE: 20220101
